FAERS Safety Report 5886648-6 (Version None)
Quarter: 2008Q3

REPORT INFORMATION
  Report Type: 
  Country: None (occurrence: None)
  Receive Date: 20080917
  Receipt Date: 20080909
  Transmission Date: 20090109
  Serious: Yes (Other)
  Sender: FDA-Public Use
  Company Number: PHHY2008GB19903

PATIENT
  Sex: Female

DRUGS (2)
  1. CLOZARIL [Suspect]
     Indication: SCHIZOPHRENIA
     Dosage: 300 MG/DAY
     Dates: start: 20080811
  2. LORAZEPAM [Concomitant]
     Indication: ANXIETY
     Dosage: 1 DF, PRN
     Route: 048

REACTIONS (5)
  - AGITATION [None]
  - ANAEMIA [None]
  - DYSPNOEA [None]
  - HEART RATE INCREASED [None]
  - SYSTEMIC LUPUS ERYTHEMATOSUS [None]
